FAERS Safety Report 6159322-9 (Version None)
Quarter: 2009Q2

REPORT INFORMATION
  Report Type: 
  Country: None (occurrence: None)
  Receive Date: 20090414
  Receipt Date: 20090403
  Transmission Date: 20091009
  Serious: Yes (Hospitalization)
  Sender: FDA-Public Use
  Company Number: 1-17854483

PATIENT
  Sex: Male

DRUGS (5)
  1. PREDNISONE [Suspect]
     Indication: PROSTATE CANCER
     Dosage: 10 MG, DAILY, ORAL
     Route: 048
     Dates: start: 20090220
  2. CP-751,871 [Suspect]
     Indication: PROSTATE CANCER
     Dosage: 1628 MG EVERY 3 WEEKS, INTRAVENOUS
     Route: 042
     Dates: start: 20090220
  3. DOCETAXEL [Suspect]
     Indication: PROSTATE CANCER
     Dosage: 133 MG EVERY 3 WEEKS, INTRAVENOUS
     Route: 042
     Dates: start: 20090220
  4. RONAME GLIMEPIRIDE) [Concomitant]
  5. METFORMIN HCL [Concomitant]

REACTIONS (3)
  - DIARRHOEA [None]
  - HYPERGLYCAEMIA [None]
  - NEUTROPENIA [None]
